FAERS Safety Report 18889637 (Version 1)
Quarter: 2021Q1

REPORT INFORMATION
  Report Type: Report from Study
  Country: MX (occurrence: MX)
  Receive Date: 20210213
  Receipt Date: 20210213
  Transmission Date: 20210420
  Serious: Yes (Death, Other)
  Sender: FDA-Public Use
  Company Number: MX-UCBSA-2021006939

PATIENT
  Age: 87 Year
  Sex: Female

DRUGS (2)
  1. LEVETIRACETAM. [Suspect]
     Active Substance: LEVETIRACETAM
     Indication: SEIZURE
     Dosage: INITIAL DOSE
     Route: 048
  2. LEVETIRACETAM. [Suspect]
     Active Substance: LEVETIRACETAM
     Dosage: DOSE CHANGES
     Route: 048
     Dates: end: 20201120

REACTIONS (3)
  - Parkinson^s disease [Recovered/Resolved]
  - Death [Fatal]
  - Infarction [Recovered/Resolved]

NARRATIVE: CASE EVENT DATE: 20201120
